FAERS Safety Report 4399099-0 (Version None)
Quarter: 2004Q2

REPORT INFORMATION
  Report Type: 
  Country: None (occurrence: None)
  Receive Date: 20040621
  Receipt Date: 20031210
  Transmission Date: 20050107
  Serious: Yes (Hospitalization, Other)
  Sender: FDA-Public Use
  Company Number: 2013616

PATIENT
  Age: 28 Year
  Sex: Female
  Weight: 59 kg

DRUGS (8)
  1. OXYCONTIN [Suspect]
     Dosage: 20 MG, BID, ORAL
     Route: 048
     Dates: start: 19980101
  2. COCAINE (COCAINE) [Suspect]
     Dosage: INT
  3. ARTHROTEC [Concomitant]
  4. . [Concomitant]
  5. PROPULSID [Concomitant]
  6. VALIUM [Concomitant]
  7. SOMA [Concomitant]
  8. BIRTH CONTROL PILLS [Concomitant]

REACTIONS (16)
  - ABDOMINAL PAIN [None]
  - AGGRESSION [None]
  - AGITATION [None]
  - ANXIETY [None]
  - DEPRESSION [None]
  - DIZZINESS [None]
  - DRUG ABUSER [None]
  - DRUG DEPENDENCE [None]
  - IRRITABILITY [None]
  - PAIN IN EXTREMITY [None]
  - PERSONALITY DISORDER [None]
  - PRESSURE OF SPEECH [None]
  - PSYCHOMOTOR HYPERACTIVITY [None]
  - SELF INJURIOUS BEHAVIOUR [None]
  - VAGINAL HAEMORRHAGE [None]
  - VOMITING [None]
